FAERS Safety Report 17664823 (Version 1)
Quarter: 2020Q2

REPORT INFORMATION
  Report Type: Spontaneous
  Country: US (occurrence: US)
  Receive Date: 20200414
  Receipt Date: 20200414
  Transmission Date: 20200713
  Serious: No
  Sender: FDA-Public Use
  Company Number: US-PFIZER INC-2020146911

PATIENT
  Sex: Female

DRUGS (9)
  1. TETRACYCLINE HCL [Suspect]
     Active Substance: TETRACYCLINE HYDROCHLORIDE
  2. ERYTHROMYCIN. [Suspect]
     Active Substance: ERYTHROMYCIN
  3. NOVOCAIN [Suspect]
     Active Substance: PROCAINE HYDROCHLORIDE
  4. RYZOLT [Suspect]
     Active Substance: TRAMADOL HYDROCHLORIDE
  5. CODEINE [Suspect]
     Active Substance: CODEINE
  6. AMOXICILLIN. [Suspect]
     Active Substance: AMOXICILLIN
  7. DARVOCET [Suspect]
     Active Substance: ACETAMINOPHEN\PROPOXYPHENE HYDROCHLORIDE
  8. IODINE. [Suspect]
     Active Substance: IODINE
  9. PROCAINE [Suspect]
     Active Substance: PROCAINE

REACTIONS (1)
  - Drug hypersensitivity [Unknown]
